FAERS Safety Report 15799685 (Version 1)
Quarter: 2019Q1

REPORT INFORMATION
  Report Type: Spontaneous
  Country: FR (occurrence: FR)
  Receive Date: 20190108
  Receipt Date: 20190108
  Transmission Date: 20190417
  Serious: Yes (Hospitalization)
  Sender: FDA-Public Use
  Company Number: FR-MYLANLABS-2019M1000402

PATIENT
  Age: 76 Year
  Sex: Male
  Weight: 101 kg

DRUGS (15)
  1. CARBOPLATIN. [Suspect]
     Active Substance: CARBOPLATIN
     Indication: NEOPLASM MALIGNANT
     Dosage: UNK
     Route: 042
     Dates: start: 20180131, end: 20180131
  2. UROREC [Concomitant]
     Active Substance: SILODOSIN
  3. IKOREL [Concomitant]
     Active Substance: NICORANDIL
  4. PREVISCAN                          /00789001/ [Suspect]
     Active Substance: FLUINDIONE
     Indication: THROMBOSIS PROPHYLAXIS
     Route: 048
     Dates: end: 20180130
  5. SPIRIVA [Concomitant]
     Active Substance: TIOTROPIUM BROMIDE MONOHYDRATE
  6. VENTOLINE                          /00139502/ [Concomitant]
     Active Substance: ALBUTEROL SULFATE
  7. DEDROGYL [Concomitant]
     Active Substance: CALCIFEDIOL
  8. LANZOR [Concomitant]
     Active Substance: LANSOPRAZOLE
  9. CALCIPARINE [Suspect]
     Active Substance: HEPARIN CALCIUM
     Indication: THROMBOSIS PROPHYLAXIS
     Dosage: 50000 INTERNATIONAL UNIT, QD
     Route: 058
     Dates: start: 20180130, end: 20180202
  10. ADENURIC [Concomitant]
     Active Substance: FEBUXOSTAT
  11. SEREVENT DISKUS [Concomitant]
     Active Substance: SALMETEROL XINAFOATE
  12. PACLITAXEL. [Suspect]
     Active Substance: PACLITAXEL
     Indication: NEOPLASM MALIGNANT
     Route: 042
     Dates: start: 20180131, end: 20180131
  13. AMLOR [Concomitant]
     Active Substance: AMLODIPINE BESYLATE
  14. CRESTOR [Concomitant]
     Active Substance: ROSUVASTATIN CALCIUM
  15. SOTALEX [Concomitant]
     Active Substance: SOTALOL

REACTIONS (1)
  - Haemoptysis [Recovered/Resolved]

NARRATIVE: CASE EVENT DATE: 20180201
